FAERS Safety Report 25443589 (Version 1)
Quarter: 2025Q2

REPORT INFORMATION
  Report Type: Other
  Country: TR (occurrence: TR)
  Receive Date: 20250617
  Receipt Date: 20250617
  Transmission Date: 20250717
  Serious: Yes (Other)
  Sender: APPCO PHARMA LLC
  Company Number: TR-Appco Pharma LLC-2178849

PATIENT
  Age: 55 Year
  Sex: Female

DRUGS (1)
  1. METRONIDAZOLE [Suspect]
     Active Substance: METRONIDAZOLE
     Indication: Drug provocation test

REACTIONS (1)
  - Type I hypersensitivity [Unknown]
